FAERS Safety Report 6722006-X (Version None)
Quarter: 2010Q2

REPORT INFORMATION
  Report Type: 
  Country: None (occurrence: None)
  Receive Date: 20100512
  Receipt Date: 20100507
  Transmission Date: 20101027
  Serious: Yes (Other)
  Sender: FDA-Public Use
  Company Number: A0858635A

PATIENT
  Age: 43 Year
  Sex: Female

DRUGS (2)
  1. ALLI [Suspect]
     Dates: start: 20100423, end: 20100506
  2. MULTI-VITAMIN [Concomitant]
     Route: 048

REACTIONS (5)
  - DIARRHOEA [None]
  - FAECAL INCONTINENCE [None]
  - HEADACHE [None]
  - RECTAL DISCHARGE [None]
  - RECTAL HAEMORRHAGE [None]
